FAERS Safety Report 18377503 (Version 3)
Quarter: 2020Q4

REPORT INFORMATION
  Report Type: Report from Study
  Country: None (occurrence: US)
  Receive Date: 20201013
  Receipt Date: 20201222
  Transmission Date: 20210114
  Serious: Yes (Other)
  Sender: FDA-Public Use
  Company Number: US-BIOVITRUM-2020US4776

PATIENT
  Age: 50 Year
  Sex: Female

DRUGS (3)
  1. KINERET [Suspect]
     Active Substance: ANAKINRA
     Indication: PERICARDITIS
     Route: 058
     Dates: start: 20200827
  2. KINERET [Suspect]
     Active Substance: ANAKINRA
     Indication: SYSTEMIC LUPUS ERYTHEMATOSUS
     Route: 058
     Dates: start: 20200901
  3. KINERET [Suspect]
     Active Substance: ANAKINRA
     Indication: JUVENILE IDIOPATHIC ARTHRITIS

REACTIONS (20)
  - Systemic lupus erythematosus [Unknown]
  - Fatigue [Unknown]
  - Injection site pain [Unknown]
  - Somnolence [Unknown]
  - Constipation [Unknown]
  - Sinusitis [Unknown]
  - Nasopharyngitis [Unknown]
  - Injection site reaction [Unknown]
  - Feeling abnormal [Unknown]
  - Ear infection [Unknown]
  - Abdominal distension [Unknown]
  - Headache [Unknown]
  - Injection site urticaria [Unknown]
  - Urinary tract infection [Unknown]
  - Influenza like illness [Unknown]
  - Joint swelling [Unknown]
  - Pyrexia [Unknown]
  - Injection site pruritus [Unknown]
  - Injection site erythema [Unknown]
  - Off label use [Unknown]

NARRATIVE: CASE EVENT DATE: 20200829
